FAERS Safety Report 7361340-X (Version None)
Quarter: 2011Q1

REPORT INFORMATION
  Report Type: 
  Country: None (occurrence: None)
  Receive Date: 20110318
  Receipt Date: 20110314
  Transmission Date: 20110831
  Serious: Yes (Hospitalization)
  Sender: FDA-Public Use
  Company Number: B0705696A

PATIENT
  Age: 60 Year
  Sex: Female

DRUGS (2)
  1. ZINNAT [Suspect]
     Indication: BRONCHITIS
     Route: 048
     Dates: start: 20110124, end: 20110128
  2. TAHOR [Concomitant]
     Route: 048

REACTIONS (3)
  - HYPOTENSION [None]
  - MALAISE [None]
  - URTICARIA [None]
